FAERS Safety Report 11281209 (Version 1)
Quarter: 2015Q3

REPORT INFORMATION
  Report Type: Spontaneous
  Country: FR (occurrence: FR)
  Receive Date: 20150717
  Receipt Date: 20150717
  Transmission Date: 20151125
  Serious: Yes (Hospitalization)
  Sender: FDA-Public Use
  Company Number: FR-FRESENIUS KABI-FK201503438

PATIENT
  Age: 81 Year
  Sex: Male

DRUGS (3)
  1. CARBOPLATIN INJECTION 10MG/ML [Suspect]
     Active Substance: CARBOPLATIN
     Indication: MESOTHELIOMA
     Route: 042
     Dates: start: 20150526
  2. VITAMIN THERAPY [Concomitant]
     Dates: start: 20150526
  3. ALIMTA [Suspect]
     Active Substance: PEMETREXED DISODIUM
     Indication: MESOTHELIOMA
     Route: 065
     Dates: start: 20150526

REACTIONS (6)
  - Epistaxis [Unknown]
  - General physical health deterioration [Unknown]
  - Urethritis [Unknown]
  - Aplasia [Recovered/Resolved]
  - Dysphagia [Unknown]
  - Decreased appetite [Unknown]

NARRATIVE: CASE EVENT DATE: 20150601
